FAERS Safety Report 10167928 (Version 3)
Quarter: 2015Q1

REPORT INFORMATION
  Report Type: Spontaneous
  Country: US (occurrence: US)
  Receive Date: 20140512
  Receipt Date: 20150109
  Transmission Date: 20150720
  Serious: Yes (Hospitalization)
  Sender: FDA-Public Use
  Company Number: US-GLAXOSMITHKLINE-A1071923A

PATIENT
  Age: 75 Year
  Sex: Female

DRUGS (8)
  1. BABY ASPIRIN [Concomitant]
     Active Substance: ASPIRIN
  2. ANTIBIOTIC UNSPECIFIED [Suspect]
     Active Substance: UNSPECIFIED INGREDIENT
     Indication: BRONCHITIS
     Route: 065
  3. SPIRIVA [Concomitant]
     Active Substance: TIOTROPIUM BROMIDE MONOHYDRATE
  4. SINGULAIR [Concomitant]
     Active Substance: MONTELUKAST SODIUM
  5. ATORVASTATIN [Concomitant]
     Active Substance: ATORVASTATIN
  6. ADVAIR HFA [Suspect]
     Active Substance: FLUTICASONE PROPIONATE\SALMETEROL XINAFOATE
     Indication: CHRONIC OBSTRUCTIVE PULMONARY DISEASE
     Dosage: 500/50 AND 250/50
     Route: 055
     Dates: start: 20091212
  7. LISINOPRIL. [Concomitant]
     Active Substance: LISINOPRIL
  8. ALBUTEROL NEBULIZED [Concomitant]
     Active Substance: ALBUTEROL

REACTIONS (9)
  - Back disorder [Unknown]
  - Chronic obstructive pulmonary disease [Recovering/Resolving]
  - Dehydration [Recovering/Resolving]
  - Surgery [Unknown]
  - Bronchitis [Recovering/Resolving]
  - Vomiting [Recovering/Resolving]
  - Dyspnoea [Recovering/Resolving]
  - Oxygen saturation decreased [Unknown]
  - Malaise [Not Recovered/Not Resolved]

NARRATIVE: CASE EVENT DATE: 2011
